FAERS Safety Report 22698384 (Version 3)
Quarter: 2024Q1

REPORT INFORMATION
  Report Type: Spontaneous
  Country: US (occurrence: US)
  Receive Date: 20230712
  Receipt Date: 20240208
  Transmission Date: 20240410
  Serious: No
  Sender: FDA-Public Use
  Company Number: US-KARYOPHARM-2023KPT001485

PATIENT

DRUGS (10)
  1. XPOVIO [Suspect]
     Active Substance: SELINEXOR
     Indication: Plasma cell myeloma
     Dosage: 60 MG, WEEKLY
     Route: 048
     Dates: start: 20230612
  2. DEXAMETHASONE [Concomitant]
     Active Substance: DEXAMETHASONE
  3. KYPROLIS [Concomitant]
     Active Substance: CARFILZOMIB
  4. DARZALEX [Concomitant]
     Active Substance: DARATUMUMAB
  5. ONDANSETRON [Concomitant]
     Active Substance: ONDANSETRON
  6. OLANZAPINE [Concomitant]
     Active Substance: OLANZAPINE
  7. ACYCLOVIR [Concomitant]
     Active Substance: ACYCLOVIR
  8. METOPROLOL SUCCINATE [Concomitant]
     Active Substance: METOPROLOL SUCCINATE
  9. XARELTO [Concomitant]
     Active Substance: RIVAROXABAN
  10. CEPHALEXIN [Concomitant]
     Active Substance: CEPHALEXIN

REACTIONS (8)
  - Ulcer [Unknown]
  - Anaemia [Unknown]
  - Pain [Unknown]
  - Memory impairment [Unknown]
  - Diarrhoea [Not Recovered/Not Resolved]
  - Nausea [Recovering/Resolving]
  - Constipation [Not Recovered/Not Resolved]
  - Fatigue [Unknown]

NARRATIVE: CASE EVENT DATE: 20230101
